FAERS Safety Report 23516671 (Version 1)
Quarter: 2024Q1

REPORT INFORMATION
  Report Type: Spontaneous
  Country: US (occurrence: US)
  Receive Date: 20240213
  Receipt Date: 20240213
  Transmission Date: 20240410
  Serious: Yes (Other)
  Sender: FDA-Public Use
  Company Number: US-GTI-000142

PATIENT
  Age: 50 Year
  Sex: Male

DRUGS (6)
  1. PREDNISONE [Suspect]
     Active Substance: PREDNISONE
     Indication: Product used for unknown indication
     Route: 065
  2. REGORAFENIB [Suspect]
     Active Substance: REGORAFENIB
     Indication: Product used for unknown indication
     Route: 065
  3. VANCOMYCIN [Suspect]
     Active Substance: VANCOMYCIN
     Indication: Product used for unknown indication
     Route: 065
  4. CEFEPIME [Suspect]
     Active Substance: CEFEPIME HYDROCHLORIDE
     Indication: Product used for unknown indication
     Route: 065
  5. MEROPENEM [Suspect]
     Active Substance: MEROPENEM
     Indication: Product used for unknown indication
     Route: 042
  6. AMOXICILLIN\SULBACTAM [Suspect]
     Active Substance: AMOXICILLIN\SULBACTAM
     Indication: Product used for unknown indication
     Route: 065

REACTIONS (13)
  - Pneumothorax [Recovered/Resolved]
  - Sepsis [Recovered/Resolved]
  - Leukocytosis [Recovered/Resolved]
  - Hypoxia [Recovered/Resolved]
  - Lactic acidosis [Recovered/Resolved]
  - Pneumonia [Recovered/Resolved]
  - Metastases to bone [Recovered/Resolved]
  - Pulmonary cavitation [Recovered/Resolved]
  - Bacterial infection [Recovered/Resolved]
  - Hypotension [Recovered/Resolved]
  - Pulmonary mass [Recovered/Resolved]
  - Disease susceptibility [Recovered/Resolved]
  - Leiomyosarcoma [Recovered/Resolved]
